FAERS Safety Report 5881677-0 (Version None)
Quarter: 2008Q3

REPORT INFORMATION
  Report Type: 
  Country: None (occurrence: None)
  Receive Date: 20080912
  Receipt Date: 20080708
  Transmission Date: 20090109
  Serious: No
  Sender: FDA-Public Use
  Company Number: US-ABBOTT-08P-163-0461704-00

PATIENT
  Sex: Female
  Weight: 89.892 kg

DRUGS (8)
  1. HUMIRA [Suspect]
     Indication: RHEUMATOID ARTHRITIS
     Dosage: HUMIRA WAS HELD FOR ONE DOSE
  2. HUMIRA [Suspect]
     Route: 058
  3. METHOTREXATE [Concomitant]
     Indication: RHEUMATOID ARTHRITIS
     Dosage: SHOT (ROUTE)
  4. NAPROXEN SODIUM [Concomitant]
     Indication: PAIN
     Dosage: 3 TABS / DAY AS REQUIRED
     Route: 048
  5. BENADRYL [Concomitant]
     Indication: HYPERSENSITIVITY
     Route: 048
  6. CETIRIZINE HYDROCHLORIDE [Concomitant]
     Indication: HYPERSENSITIVITY
     Route: 048
  7. GYNAD-EQUIVALENT TO PREMARIN [Concomitant]
     Indication: HORMONE REPLACEMENT THERAPY
     Route: 048
  8. OMEPRAZOLE MAGNESIUM [Concomitant]
     Indication: GASTRIC DISORDER
     Route: 048

REACTIONS (4)
  - COUGH [None]
  - INFLUENZA [None]
  - INJECTION SITE PAIN [None]
  - LYMPHADENOPATHY [None]
